FAERS Safety Report 13147867 (Version 1)
Quarter: 2017Q1

REPORT INFORMATION
  Report Type: Spontaneous
  Country: US (occurrence: US)
  Receive Date: 20170120
  Receipt Date: 20170120
  Transmission Date: 20170428
  Serious: Yes (Disabling, Other)
  Sender: FDA-Public Use
  Company Number: None

PATIENT
  Age: 53 Year
  Sex: Female
  Weight: 41.85 kg

DRUGS (1)
  1. AZOTHIOPRINE [Suspect]
     Active Substance: AZATHIOPRINE
     Indication: CROHN^S DISEASE
     Dosage: ?          QUANTITY:1 TABLET(S);?
     Route: 048
     Dates: start: 20150301, end: 20160301

REACTIONS (21)
  - Hair disorder [None]
  - Muscle atrophy [None]
  - Condition aggravated [None]
  - Depressed level of consciousness [None]
  - Quality of life decreased [None]
  - Nausea [None]
  - Laboratory test abnormal [None]
  - Pain [None]
  - Blindness [None]
  - Malaise [None]
  - Arthralgia [None]
  - Fall [None]
  - Tinnitus [None]
  - Neurodermatitis [None]
  - Bone loss [None]
  - Asthenia [None]
  - Visual impairment [None]
  - Myalgia [None]
  - Skin disorder [None]
  - Nail disorder [None]
  - Hypersomnia [None]
